FAERS Safety Report 7944679-6 (Version None)
Quarter: 2011Q4

REPORT INFORMATION
  Report Type: 
  Country: None (occurrence: None)
  Receive Date: 20111129
  Receipt Date: 20111121
  Transmission Date: 20120403
  Serious: Yes (Other)
  Sender: FDA-Public Use
  Company Number: JP-JNJFOC-20111012845

PATIENT
  Age: 74 Year
  Sex: Male

DRUGS (6)
  1. FENTOS TAPE [Concomitant]
     Indication: PRODUCT USED FOR UNKNOWN INDICATION
     Route: 065
  2. UNSPECIFIED GENERIC DRUG [Concomitant]
     Route: 065
  3. RISPERIDONE [Suspect]
     Indication: PRODUCT USED FOR UNKNOWN INDICATION
     Dosage: AT BED TIME
     Route: 048
  4. OXINORM [Concomitant]
     Indication: PRODUCT USED FOR UNKNOWN INDICATION
     Route: 048
  5. TETRAMIDE [Concomitant]
     Indication: SLEEP DISORDER THERAPY
     Route: 048
  6. OXYCONTIN [Concomitant]
     Indication: PRODUCT USED FOR UNKNOWN INDICATION
     Route: 048

REACTIONS (5)
  - NIGHTMARE [None]
  - MALAISE [None]
  - ANXIETY [None]
  - IRRITABILITY [None]
  - HALLUCINATION [None]
